FAERS Safety Report 8877628 (Version 1)
Quarter: 2012Q4

REPORT INFORMATION
  Report Type: Spontaneous
  Country: US (occurrence: None)
  Receive Date: 20121031
  Receipt Date: 20121031
  Transmission Date: 20130627
  Serious: Yes (Other)
  Sender: FDA-Public Use
  Company Number: None

PATIENT
  Sex: Female
  Weight: 52.16 kg

DRUGS (1)
  1. IODOFORM [Suspect]
     Dates: start: 20120730, end: 20120716

REACTIONS (2)
  - Product packaging issue [None]
  - Expired drug administered [None]
